FAERS Safety Report 6141507-9 (Version None)
Quarter: 2009Q2

REPORT INFORMATION
  Report Type: 
  Country: None (occurrence: None)
  Receive Date: 20090402
  Receipt Date: 20090326
  Transmission Date: 20091009
  Serious: Yes (Disabling)
  Sender: FDA-Public Use
  Company Number: AR-TEVA-188386ISR

PATIENT
  Sex: Female

DRUGS (6)
  1. HYDROXYCHLOROQUINE [Suspect]
     Indication: ARTHRITIS
     Route: 048
     Dates: start: 20090212, end: 20090313
  2. CITALOPRAM [Concomitant]
     Indication: DEPRESSION
     Route: 048
  3. LOSARTAN POTASSIUM [Concomitant]
     Indication: HYPERTENSION
     Route: 048
  4. ATORVASTATIN CALCIUM [Concomitant]
     Indication: HYPERCHOLESTEROLAEMIA
     Route: 048
  5. PANCRELIPASE [Concomitant]
     Indication: HYPERCHOLESTEROLAEMIA
     Route: 048
  6. ASCORBIC ACID [Concomitant]
     Indication: HYPERCHOLESTEROLAEMIA
     Route: 048

REACTIONS (3)
  - NEOPLASM MALIGNANT [None]
  - RETINAL DETACHMENT [None]
  - VISUAL FIELD DEFECT [None]
